APPROVED DRUG PRODUCT: POTASSIUM CHLORIDE
Active Ingredient: POTASSIUM CHLORIDE
Strength: 8MEQ
Dosage Form/Route: TABLET, EXTENDED RELEASE;ORAL
Application: A070618 | Product #001
Applicant: COPLEY PHARMACEUTICAL INC
Approved: Sep 9, 1987 | RLD: No | RS: No | Type: DISCN